FAERS Safety Report 24764683 (Version 2)
Quarter: 2024Q4

REPORT INFORMATION
  Report Type: Report from Study
  Country: US (occurrence: US)
  Receive Date: 20241223
  Receipt Date: 20241226
  Transmission Date: 20250114
  Serious: Yes (Other)
  Sender: ABBVIE
  Company Number: US-ABBVIE-6052729

PATIENT
  Age: 75 Year
  Sex: Female

DRUGS (2)
  1. SKYRIZI [Suspect]
     Active Substance: RISANKIZUMAB-RZAA
     Indication: Psoriasis
     Dosage: DOSAGE: 150 MG/ML
     Route: 058
     Dates: start: 20210709
  2. CLOBETASOL [Concomitant]
     Active Substance: CLOBETASOL
     Indication: Product used for unknown indication
     Dosage: OINTMENT

REACTIONS (5)
  - Cataract [Recovered/Resolved]
  - Vaginal disorder [Not Recovered/Not Resolved]
  - Psoriasis [Recovered/Resolved]
  - Drug hypersensitivity [Not Recovered/Not Resolved]
  - Lip dry [Unknown]

NARRATIVE: CASE EVENT DATE: 20240101
